FAERS Safety Report 8945128 (Version 1)
Quarter: 2012Q4

REPORT INFORMATION
  Report Type: 
  Country: US (occurrence: US)
  Receive Date: 20121204
  Receipt Date: 20121204
  Transmission Date: 20130627
  Serious: No
  Sender: FDA-Public Use
  Company Number: US-AMGEN-USASP2012066681

PATIENT
  Age: 48 Year
  Sex: Female

DRUGS (1)
  1. ENBREL [Suspect]
     Indication: PSORIATIC ARTHROPATHY
     Dosage: 50 mg, qwk
     Dates: start: 20071203

REACTIONS (5)
  - Burning sensation [Recovered/Resolved]
  - Muscular weakness [Recovered/Resolved]
  - Activities of daily living impaired [Recovered/Resolved]
  - Slow speech [Recovered/Resolved]
  - Paraesthesia [Recovered/Resolved]
